FAERS Safety Report 4365675-4 (Version None)
Quarter: 2004Q2

REPORT INFORMATION
  Report Type: 
  Country: None (occurrence: None)
  Receive Date: 20040520
  Receipt Date: 20040430
  Transmission Date: 20050107
  Serious: Yes (Other)
  Sender: FDA-Public Use
  Company Number: 206535

PATIENT
  Age: 6 Year
  Sex: Male

DRUGS (3)
  1. NUTROPIN [Suspect]
     Dosage: 1.51 MG, QD, INTRAVENOUS
     Route: 042
  2. CORTEF [Concomitant]
  3. SYNTHROID [Concomitant]

REACTIONS (4)
  - ABDOMINAL PAIN [None]
  - HEADACHE [None]
  - NAUSEA [None]
  - NEOPLASM MALIGNANT [None]
